FAERS Safety Report 8445228-9 (Version None)
Quarter: 2012Q2

REPORT INFORMATION
  Report Type: 
  Country: None (occurrence: None)
  Receive Date: 20120618
  Receipt Date: 20100901
  Transmission Date: 20120825
  Serious: Yes (Other)
  Sender: FDA-Public Use
  Company Number: PT-ROCHE-1078889

PATIENT

DRUGS (3)
  1. OXALIPLATIN [Concomitant]
     Indication: GASTROOESOPHAGEAL CANCER
     Route: 065
  2. XELODA [Suspect]
     Indication: GASTROOESOPHAGEAL CANCER
     Route: 065
  3. CISPLATIN [Concomitant]
     Indication: GASTROOESOPHAGEAL CANCER
     Route: 065

REACTIONS (1)
  - DISEASE PROGRESSION [None]
